FAERS Safety Report 17206475 (Version 1)
Quarter: 2019Q4

REPORT INFORMATION
  Report Type: Spontaneous
  Country: US (occurrence: US)
  Receive Date: 20191205
  Receipt Date: 20191205
  Transmission Date: 20200122
  Serious: No
  Sender: FDA-Public Use
  Company Number: None

PATIENT
  Age: 57 Year
  Sex: Female

DRUGS (1)
  1. AFINITOR [Suspect]
     Active Substance: EVEROLIMUS
     Route: 048
     Dates: start: 20191012

REACTIONS (4)
  - Pruritus [None]
  - Diarrhoea [None]
  - Skin discolouration [None]
  - Abdominal pain [None]

NARRATIVE: CASE EVENT DATE: 20191205
